FAERS Safety Report 24432853 (Version 1)
Quarter: 2024Q4

REPORT INFORMATION
  Report Type: Report from Study
  Country: AT (occurrence: AT)
  Receive Date: 20241014
  Receipt Date: 20241014
  Transmission Date: 20250115
  Serious: Yes (Other)
  Sender: PFIZER
  Company Number: AT-ROCHE-2598808

PATIENT
  Age: 49 Year
  Sex: Female
  Weight: 55 kg

DRUGS (22)
  1. AROMASIN [Suspect]
     Active Substance: EXEMESTANE
     Indication: HER2 positive breast cancer
     Dosage: 25 MG, DAILY
     Route: 048
     Dates: start: 20181108
  2. ABRAXANE [Suspect]
     Active Substance: PACLITAXEL
     Indication: HER2 positive breast cancer
     Dosage: 199 MG, WEEKLY
     Route: 042
     Dates: start: 20181205, end: 20190515
  3. ABRAXANE [Suspect]
     Active Substance: PACLITAXEL
     Dosage: UNK
  4. HERCEPTIN [Suspect]
     Active Substance: TRASTUZUMAB
     Indication: HER2 positive breast cancer
     Dosage: 330 MG, EVERY 3 WEEKS (SHE RECEIVED THE MOST RECENT DOSE ON 18SEP2019)
     Route: 042
     Dates: start: 20181113, end: 20190918
  5. HERCEPTIN [Suspect]
     Active Substance: TRASTUZUMAB
     Dosage: 330 MG, MONTHLY
     Route: 042
     Dates: start: 20190919, end: 20210406
  6. PERJETA [Suspect]
     Active Substance: PERTUZUMAB
     Indication: HER2 positive breast cancer
     Dosage: 420 MG, EVERY 3 WEEKS
     Route: 042
     Dates: start: 20181113, end: 20190918
  7. PERJETA [Suspect]
     Active Substance: PERTUZUMAB
     Dosage: 420 MG, MONTHLY
     Route: 042
     Dates: start: 20190918, end: 20210406
  8. PREGABALIN [Concomitant]
     Active Substance: PREGABALIN
     Dosage: 75 MG
     Route: 048
     Dates: start: 20190104
  9. PREGABALIN [Concomitant]
     Active Substance: PREGABALIN
     Dosage: 75 MG
     Dates: start: 20211004
  10. DIAZEPAM [Concomitant]
     Active Substance: DIAZEPAM
     Dosage: 30 DROP, 1X/DAY
     Route: 048
     Dates: start: 20181108
  11. OLEOVIT [DEXPANTHENOL;RETINOL] [Concomitant]
     Dosage: UNK
     Dates: start: 20181108
  12. PANTOPRAZOLE [Concomitant]
     Active Substance: PANTOPRAZOLE
     Dosage: 40 MG
     Route: 048
     Dates: start: 20181108
  13. XGEVA [Concomitant]
     Active Substance: DENOSUMAB
     Indication: Metastases to bone
     Dosage: 120 MG, (FREQUENCY 4 WEEK)
     Route: 058
     Dates: start: 20190104
  14. METOCLOPRAMIDE HYDROCHLORIDE [Concomitant]
     Active Substance: METOCLOPRAMIDE HYDROCHLORIDE
     Dosage: UNK
  15. DEXAMETHASONE [Concomitant]
     Active Substance: DEXAMETHASONE
     Dosage: UNK
  16. RETINOL [Concomitant]
     Active Substance: RETINOL
     Dosage: UNK
     Dates: start: 20181108
  17. APREPITANT [Concomitant]
     Active Substance: APREPITANT
     Dosage: UNK
  18. LEVOTHYROXINE SODIUM [Concomitant]
     Active Substance: LEVOTHYROXINE SODIUM
     Dosage: UNK
  19. NOVALGIN (METAMIZOLE SODIUM) [Concomitant]
     Active Substance: METAMIZOLE SODIUM
     Dosage: UNK
  20. ENOXAPARIN SODIUM [Concomitant]
     Active Substance: ENOXAPARIN SODIUM
     Dosage: UNK
  21. ONDANSETRON [Concomitant]
     Active Substance: ONDANSETRON
     Dosage: UNK
  22. MAGNESIUM VERLA [MAGNESIUM] [Concomitant]
     Dosage: UNK

REACTIONS (3)
  - Polyneuropathy [Recovered/Resolved]
  - Arthralgia [Recovered/Resolved]
  - Stomatitis [Recovered/Resolved]

NARRATIVE: CASE EVENT DATE: 20181207
